FAERS Safety Report 9160114 (Version 9)
Quarter: 2014Q4

REPORT INFORMATION
  Report Type: Report from Study
  Country: CA (occurrence: CA)
  Receive Date: 20130313
  Receipt Date: 20141201
  Transmission Date: 20150529
  Serious: Yes (Other)
  Sender: FDA-Public Use
  Company Number: CA-ROCHE-1112269

PATIENT
  Age: 59 Year
  Sex: Female
  Weight: 60 kg

DRUGS (7)
  1. ZELBORAF [Suspect]
     Active Substance: VEMURAFENIB
     Indication: METASTATIC MALIGNANT MELANOMA
     Route: 048
     Dates: start: 20120811, end: 20140926
  2. ZOPICLONE [Concomitant]
     Active Substance: ZOPICLONE
     Indication: INSOMNIA
     Route: 048
  3. ZELBORAF [Suspect]
     Active Substance: VEMURAFENIB
     Route: 048
     Dates: start: 201209, end: 20140926
  4. VIMOVO [Suspect]
     Active Substance: ESOMEPRAZOLE MAGNESIUM\NAPROXEN
     Indication: BLOOD IRON
     Dosage: ONE TABLET EVERY OTHER DAY
     Route: 065
  5. VIMOVO [Suspect]
     Active Substance: ESOMEPRAZOLE MAGNESIUM\NAPROXEN
     Indication: PAIN
  6. ZELBORAF [Suspect]
     Active Substance: VEMURAFENIB
     Route: 048
     Dates: start: 201302, end: 20140926
  7. CANDESARTAN [Concomitant]
     Active Substance: CANDESARTAN
     Indication: HYPERTENSION
     Route: 048

REACTIONS (23)
  - Fatigue [Not Recovered/Not Resolved]
  - Infection [Unknown]
  - Arthralgia [Unknown]
  - Erythema [Unknown]
  - Decreased appetite [Not Recovered/Not Resolved]
  - Blood iron decreased [Unknown]
  - Red blood cell count decreased [Recovered/Resolved]
  - Bone density abnormal [Unknown]
  - Mass [Not Recovered/Not Resolved]
  - Swelling [Recovering/Resolving]
  - Pruritus [Unknown]
  - Pseudolymphoma [Recovering/Resolving]
  - Pyrexia [Not Recovered/Not Resolved]
  - Myalgia [Unknown]
  - Lower limb fracture [Unknown]
  - Arthralgia [Not Recovered/Not Resolved]
  - Enteritis infectious [Recovered/Resolved]
  - Dry skin [Unknown]
  - Malignant neoplasm progression [Not Recovered/Not Resolved]
  - Fall [Unknown]
  - Mass [Unknown]
  - Rash [Recovering/Resolving]
  - Pain of skin [Unknown]

NARRATIVE: CASE EVENT DATE: 20120813
